FAERS Safety Report 7688518-X (Version None)
Quarter: 2011Q3

REPORT INFORMATION
  Report Type: 
  Country: None (occurrence: None)
  Receive Date: 20110817
  Receipt Date: 20110815
  Transmission Date: 20111222
  Serious: Yes (Other)
  Sender: FDA-Public Use
  Company Number: US-PFIZER INC-2011187876

PATIENT
  Sex: Female
  Weight: 87.528 kg

DRUGS (3)
  1. LISINOPRIL [Concomitant]
     Dosage: UNK
  2. LIPITOR [Suspect]
     Indication: BLOOD CHOLESTEROL INCREASED
     Dosage: 10 MG, 1X/DAY
     Route: 048
     Dates: start: 20080101, end: 20110814
  3. DIOVAN [Concomitant]
     Dosage: UNK

REACTIONS (1)
  - DIAPHRAGMATIC DISORDER [None]
